FAERS Safety Report 5351332-4 (Version None)
Quarter: 2007Q2

REPORT INFORMATION
  Report Type: 
  Country: None (occurrence: None)
  Receive Date: 20070608
  Receipt Date: 20070604
  Transmission Date: 20071010
  Serious: Yes (Death, Hospitalization)
  Sender: FDA-Public Use
  Company Number: AR-AMGEN-US218004

PATIENT
  Sex: Male

DRUGS (6)
  1. PANITUMUMAB [Suspect]
     Indication: COLORECTAL CANCER
     Route: 042
     Dates: start: 20070320, end: 20070320
  2. PANITUMUMAB [Suspect]
     Route: 042
     Dates: start: 20070306, end: 20070306
  3. FLUOROURACIL [Suspect]
     Route: 042
     Dates: start: 20070306
  4. LEUCOVORIN CALCIUM [Suspect]
     Route: 042
     Dates: start: 20070306
  5. OXALIPLATIN [Suspect]
     Route: 042
     Dates: start: 20070306
  6. LOPERAMIDE HCL [Concomitant]
     Route: 065

REACTIONS (4)
  - ANAEMIA [None]
  - DEHYDRATION [None]
  - DIARRHOEA [None]
  - FEBRILE NEUTROPENIA [None]
